FAERS Safety Report 7444614-3 (Version None)
Quarter: 2011Q2

REPORT INFORMATION
  Report Type: 
  Country: None (occurrence: None)
  Receive Date: 20110429
  Receipt Date: 20110427
  Transmission Date: 20111010
  Serious: No
  Sender: FDA-Public Use
  Company Number: US-PFIZER INC-2011091968

PATIENT
  Age: 55 Year
  Sex: Female
  Weight: 62 kg

DRUGS (7)
  1. ACETYLSALICYLIC ACID [Concomitant]
     Dosage: UNK
  2. DIAZEPAM [Concomitant]
     Dosage: 500 MG, UNK
  3. ACETAMINOPHEN [Concomitant]
     Indication: ARTHRITIS
     Dosage: UNK
     Route: 048
  4. LYRICA [Suspect]
     Indication: FIBROMYALGIA
     Dosage: 150 MG, 3X/DAY
     Route: 048
  5. SIMVASTATIN [Concomitant]
     Indication: BLOOD CHOLESTEROL INCREASED
     Dosage: 40 MG, UNK
  6. ELMIRON [Concomitant]
     Dosage: 100 MG, 3X/DAY
     Route: 048
  7. LEXAPRO [Concomitant]
     Dosage: UNK
     Route: 048

REACTIONS (5)
  - MYALGIA [None]
  - GAIT DISTURBANCE [None]
  - VITAMIN D DECREASED [None]
  - NEURALGIA [None]
  - ARTHRALGIA [None]
